FAERS Safety Report 6166724-3 (Version None)
Quarter: 2009Q2

REPORT INFORMATION
  Report Type: 
  Country: None (occurrence: None)
  Receive Date: 20090424
  Receipt Date: 20090410
  Transmission Date: 20091009
  Serious: Yes (Other)
  Sender: FDA-Public Use
  Company Number: US-PFIZER INC-2009179588

PATIENT
  Sex: Male
  Weight: 64 kg

DRUGS (11)
  1. BLINDED *PLACEBO [Suspect]
     Indication: PROSTATE CANCER
     Dosage: 37.5 MG, 1X/DAY
     Route: 048
     Dates: start: 20081210, end: 20090311
  2. BLINDED SUNITINIB MALATE [Suspect]
     Indication: PROSTATE CANCER
     Dosage: 37.5 MG, 1X/DAY
     Route: 048
     Dates: start: 20081210, end: 20090311
  3. PREDNISONE [Suspect]
     Indication: PROSTATE CANCER
     Dosage: 5 MG, 2X/DAY
     Route: 048
     Dates: start: 20080218, end: 20090321
  4. LISINOPRIL [Concomitant]
     Indication: HYPERTENSION
     Dosage: 5 MG, 1X/DAY
     Route: 048
     Dates: start: 20050415
  5. HYDROCHLOROTHIAZIDE [Concomitant]
     Indication: HYPERTENSION
     Dosage: 12.5 MG, 1X/DAY
     Route: 048
     Dates: start: 20050415, end: 20090305
  6. OSCAL [Concomitant]
     Indication: OSTEOPOROSIS
     Dosage: 630 MG, 1X/DAY
     Route: 048
     Dates: start: 20080218
  7. TYLENOL [Concomitant]
     Indication: PAIN
     Dosage: 500 MG, PRN
     Route: 048
     Dates: start: 20090122
  8. CASODEX [Concomitant]
     Indication: PROSTATE CANCER
     Dosage: 50 MG, 1X/DAY
     Route: 048
     Dates: start: 20030415, end: 20090308
  9. LUPRON [Concomitant]
     Indication: PROSTATE CANCER
     Dosage: 30 MG, EVERY 4 MONTHS
     Route: 058
     Dates: start: 20010101
  10. FOSAMAX [Concomitant]
     Indication: OSTEOPOROSIS
     Dosage: 70 MG,
     Route: 048
     Dates: start: 20041014
  11. VITAMIN D [Concomitant]
     Indication: OSTEOPOROSIS
     Dosage: 400 IU, 1X/DAY
     Route: 048
     Dates: start: 20041014

REACTIONS (1)
  - FAILURE TO THRIVE [None]
